FAERS Safety Report 8455239-5 (Version None)
Quarter: 2012Q2

REPORT INFORMATION
  Report Type: 
  Country: None (occurrence: None)
  Receive Date: 20120614
  Receipt Date: 20120606
  Transmission Date: 20120825
  Serious: Yes (Other)
  Sender: FDA-Public Use
  Company Number: USA/USA/12/0024593

PATIENT
  Age: 62 Year
  Sex: Female
  Weight: 44.4525 kg

DRUGS (10)
  1. FEXOFENADINE HYDROCHLORIDE [Suspect]
     Indication: MULTIPLE ALLERGIES
     Dosage: 180 MG, 1 IN 1 D, ORAL
     Route: 048
  2. VITAMIN B12 [Concomitant]
  3. ASCORBIC ACID [Concomitant]
  4. POTASSIUM ACETATE [Concomitant]
  5. CALCIUM [Concomitant]
  6. VITAMIN E [Concomitant]
  7. LEVOXYL [Concomitant]
  8. FISH OIL [Concomitant]
  9. VITAMIN B6 [Concomitant]
  10. VITAMIN D [Concomitant]

REACTIONS (4)
  - GASTROENTERITIS VIRAL [None]
  - CONDITION AGGRAVATED [None]
  - PRODUCT QUALITY ISSUE [None]
  - COELIAC DISEASE [None]
